FAERS Safety Report 8971468 (Version 1)
Quarter: 2012Q4

REPORT INFORMATION
  Report Type: Report from Study
  Country: NL (occurrence: NL)
  Receive Date: 20121217
  Receipt Date: 20121217
  Transmission Date: 20130627
  Serious: Yes (Hospitalization)
  Sender: FDA-Public Use
  Company Number: NL-BAXTER-2012BAX026741

PATIENT
  Age: 59 Year
  Sex: Male

DRUGS (6)
  1. GAMMAGARD S/D [Suspect]
     Indication: MULTIFOCAL MOTOR NEUROPATHY
     Route: 042
  2. GAMMAGARD S/D [Suspect]
     Route: 042
     Dates: start: 20121119
  3. GAMMAGARD S/D [Suspect]
     Route: 042
     Dates: start: 20121207
  4. GAMMAGARD S/D [Suspect]
     Indication: MULTIFOCAL MOTOR NEUROPATHY
     Route: 042
  5. GAMMAGARD S/D [Suspect]
     Route: 042
     Dates: start: 20121119
  6. GAMMAGARD S/D [Suspect]
     Route: 042
     Dates: start: 20121207

REACTIONS (1)
  - Transient ischaemic attack [Recovered/Resolved]
